FAERS Safety Report 15396438 (Version 3)
Quarter: 2019Q1

REPORT INFORMATION
  Report Type: Spontaneous
  Country: US (occurrence: US)
  Receive Date: 20180918
  Receipt Date: 20190222
  Transmission Date: 20190417
  Serious: No
  Sender: FDA-Public Use
  Company Number: US-TEVA-2018-US-955541

PATIENT
  Sex: Female

DRUGS (1)
  1. LIDOCAINE ACTAVIS [Suspect]
     Active Substance: LIDOCAINE
     Route: 062

REACTIONS (10)
  - Application site erythema [Unknown]
  - Application site alopecia [Unknown]
  - Product adhesion issue [Unknown]
  - Application site scar [Unknown]
  - Product quality issue [Unknown]
  - Application site burn [Unknown]
  - Application site exfoliation [Unknown]
  - Pain of skin [Unknown]
  - Feeling abnormal [Unknown]
  - Application site discolouration [Unknown]
